FAERS Safety Report 13428142 (Version 3)
Quarter: 2017Q2

REPORT INFORMATION
  Report Type: Report from Study
  Country: None (occurrence: FR)
  Receive Date: 20170411
  Receipt Date: 20170512
  Transmission Date: 20170830
  Serious: Yes (Hospitalization)
  Sender: FDA-Public Use
  Company Number: FR-ABBVIE-17P-056-1935115-00

PATIENT
  Age: 71 Year
  Sex: Male

DRUGS (1)
  1. DUODOPA [Suspect]
     Active Substance: CARBIDOPA\LEVODOPA
     Indication: PRODUCT USED FOR UNKNOWN INDICATION
     Route: 050
     Dates: start: 20170329

REACTIONS (3)
  - Abdominal pain [Recovering/Resolving]
  - Arthralgia [Not Recovered/Not Resolved]
  - Stoma site inflammation [Recovering/Resolving]

NARRATIVE: CASE EVENT DATE: 20170404
